FAERS Safety Report 9681618 (Version 2)
Quarter: 2014Q1

REPORT INFORMATION
  Report Type: Spontaneous
  Country: NO (occurrence: NO)
  Receive Date: 20131111
  Receipt Date: 20140116
  Transmission Date: 20141002
  Serious: Yes (Other)
  Sender: FDA-Public Use
  Company Number: NO-AMGEN-NORSP2013078432

PATIENT
  Age: 65 Year
  Sex: Male

DRUGS (11)
  1. VECTIBIX [Suspect]
     Indication: COLON CANCER
     Dosage: 444 MG, AS MONOTHERAPY
     Route: 065
     Dates: start: 20130430
  2. VECTIBIX [Suspect]
     Indication: METASTASES TO LIVER
     Dosage: UNK
     Route: 065
  3. VECTIBIX [Suspect]
     Dosage: UNK
     Route: 065
  4. FOLINIC ACID [Concomitant]
     Indication: COLON CANCER
     Dosage: UNK
     Dates: start: 20130923
  5. FOLINIC ACID [Concomitant]
     Indication: METASTASES TO LIVER
  6. FLUOROURACIL [Concomitant]
     Indication: COLON CANCER
     Dosage: UNK
     Dates: start: 20130923
  7. FLUOROURACIL [Concomitant]
     Indication: METASTASES TO LIVER
  8. OXALIPLATIN [Concomitant]
     Indication: COLON CANCER
     Dosage: UNK
     Dates: start: 20130923
  9. OXALIPLATIN [Concomitant]
     Indication: METASTASES TO LIVER
  10. PREDNISOLONE [Concomitant]
     Dosage: UNK
     Dates: start: 20130514
  11. MEDROL                             /00049601/ [Concomitant]
     Dosage: UNK

REACTIONS (1)
  - Skin reaction [Not Recovered/Not Resolved]
